FAERS Safety Report 13595557 (Version 1)
Quarter: 2017Q2

REPORT INFORMATION
  Report Type: Spontaneous
  Country: US (occurrence: US)
  Receive Date: 20170531
  Receipt Date: 20170531
  Transmission Date: 20170830
  Serious: No
  Sender: FDA-Public Use
  Company Number: US-JNJFOC-20170403471

PATIENT
  Age: 3 Year
  Sex: Female

DRUGS (4)
  1. MOTRIN [Suspect]
     Active Substance: IBUPROFEN
     Indication: MALAISE
     Dosage: 3/4 OF A FULL BOTTLE AT ONE TIME
     Route: 048
     Dates: start: 20170403, end: 20170403
  2. MOTRIN [Suspect]
     Active Substance: IBUPROFEN
     Indication: ACCIDENTAL EXPOSURE TO PRODUCT
     Dosage: 3/4 OF A FULL BOTTLE AT ONE TIME
     Route: 048
     Dates: start: 20170403, end: 20170403
  3. MOTRIN [Suspect]
     Active Substance: IBUPROFEN
     Indication: MALAISE
     Route: 048
     Dates: start: 201704
  4. MOTRIN [Suspect]
     Active Substance: IBUPROFEN
     Indication: ACCIDENTAL EXPOSURE TO PRODUCT
     Route: 048
     Dates: start: 201704

REACTIONS (4)
  - Abdominal pain upper [Recovering/Resolving]
  - Drug administered to patient of inappropriate age [Unknown]
  - Failure of child resistant mechanism for pharmaceutical product [Unknown]
  - Accidental exposure to product by child [Recovering/Resolving]

NARRATIVE: CASE EVENT DATE: 201704
